FAERS Safety Report 5828858-X (Version None)
Quarter: 2008Q3

REPORT INFORMATION
  Report Type: 
  Country: None (occurrence: None)
  Receive Date: 20080731
  Receipt Date: 20080723
  Transmission Date: 20090109
  Serious: Yes (Hospitalization)
  Sender: FDA-Public Use
  Company Number: DE-BRISTOL-MYERS SQUIBB COMPANY-14220214

PATIENT
  Age: 63 Year
  Sex: Female

DRUGS (3)
  1. CETUXIMAB [Suspect]
     Indication: BILE DUCT CANCER
     Dosage: 500MG/M2, 1 IN 2WEEK 12JUN08-ONGOING
     Route: 042
     Dates: start: 20080502, end: 20080502
  2. GEMZAR [Suspect]
     Indication: BILE DUCT CANCER
     Dosage: 1000MG/M2, 1 IN 2WEEK, 12JUN08-ONGOING
     Route: 042
     Dates: start: 20080502, end: 20080502
  3. ELOXATIN [Suspect]
     Indication: BILE DUCT CANCER
     Dosage: 100MG/M2 1 IN 2WEEK; 13JUN08-ONGOING
     Route: 042
     Dates: start: 20080503, end: 20080503

REACTIONS (2)
  - ABDOMINAL PAIN [None]
  - PYREXIA [None]
